FAERS Safety Report 7391299-0 (Version None)
Quarter: 2011Q2

REPORT INFORMATION
  Report Type: 
  Country: None (occurrence: None)
  Receive Date: 20110404
  Receipt Date: 20100615
  Transmission Date: 20111010
  Serious: No
  Sender: FDA-Public Use
  Company Number: US-PFIZER INC-2010075117

PATIENT
  Sex: Female
  Weight: 66 kg

DRUGS (2)
  1. SERTRALINE HYDROCHLORIDE [Suspect]
     Indication: ANXIETY
  2. SERTRALINE HYDROCHLORIDE [Suspect]
     Indication: PANIC DISORDER
     Dosage: 50 MG, DAILY  AT NIGHT
     Route: 048
     Dates: start: 20100609

REACTIONS (3)
  - HYPERHIDROSIS [None]
  - FEELING JITTERY [None]
  - NIGHT SWEATS [None]
